FAERS Safety Report 22331971 (Version 1)
Quarter: 2023Q2

REPORT INFORMATION
  Report Type: Report from Study
  Country: US (occurrence: None)
  Receive Date: 20230517
  Receipt Date: 20230517
  Transmission Date: 20230721
  Serious: Yes (Hospitalization)
  Sender: FDA-Public Use
  Company Number: US-Eisai Medical Research-EC-2023-135636

PATIENT
  Age: 59 Year
  Sex: Female
  Weight: 113.3 kg

DRUGS (18)
  1. LENVIMA [Suspect]
     Active Substance: LENVATINIB
     Indication: Uterine cancer
     Route: 048
     Dates: start: 20230203, end: 2023
  2. LENVIMA [Suspect]
     Active Substance: LENVATINIB
     Dosage: THREE TIMES PER WEEK
     Route: 048
     Dates: start: 2023, end: 20230426
  3. LENVIMA [Suspect]
     Active Substance: LENVATINIB
     Dosage: 20 MG ON MON-WED-FRI AND 10 MG ON OTHER DAYS
     Route: 048
     Dates: start: 20230427
  4. ADVAIR HFA [Concomitant]
     Active Substance: FLUTICASONE PROPIONATE\SALMETEROL XINAFOATE
  5. ADVIL [Concomitant]
     Active Substance: IBUPROFEN
  6. AVASTIN [Concomitant]
     Active Substance: BEVACIZUMAB
  7. CITALOPRAM [Concomitant]
     Active Substance: CITALOPRAM HYDROBROMIDE
  8. GABAPENTIN [Concomitant]
     Active Substance: GABAPENTIN
  9. DEXTROSE [Concomitant]
     Active Substance: DEXTROSE\DEXTROSE MONOHYDRATE
  10. HUMALOG [Concomitant]
     Active Substance: INSULIN LISPRO
  11. ICOSAPENT ETHYL [Concomitant]
     Active Substance: ICOSAPENT ETHYL
  12. LOSARTAN [Concomitant]
     Active Substance: LOSARTAN
  13. MELATONIN [Concomitant]
     Active Substance: MELATONIN
  14. PRILOSEC [Concomitant]
     Active Substance: OMEPRAZOLE MAGNESIUM
  15. ROSUVASTATIN [Concomitant]
     Active Substance: ROSUVASTATIN
  16. SEMGLEE [Concomitant]
  17. TYLENOL [Concomitant]
     Active Substance: ACETAMINOPHEN
  18. VITAMIN D3 [Concomitant]
     Active Substance: CHOLECALCIFEROL

REACTIONS (3)
  - Faeces discoloured [Recovered/Resolved]
  - Diarrhoea [Not Recovered/Not Resolved]
  - Hypotension [Unknown]

NARRATIVE: CASE EVENT DATE: 20230101
